FAERS Safety Report 6248687-5 (Version None)
Quarter: 2009Q2

REPORT INFORMATION
  Report Type: 
  Country: None (occurrence: None)
  Receive Date: 20090624
  Receipt Date: 20090608
  Transmission Date: 20091009
  Serious: Yes (Death, Hospitalization)
  Sender: FDA-Public Use
  Company Number: 2009AL001304

PATIENT
  Age: 84 Year
  Sex: Female

DRUGS (9)
  1. DIGOXIN [Suspect]
     Indication: HEART RATE IRREGULAR
     Dosage: 0.125MG, DAILY, PO
     Route: 048
  2. SYNTHROID [Concomitant]
  3. PROZAC [Concomitant]
  4. COUMADIN [Concomitant]
  5. ZOCOR [Concomitant]
  6. PREDNISONE [Concomitant]
  7. PEPECID [Concomitant]
  8. VANCOMYIN [Concomitant]
  9. PREMARIN [Concomitant]

REACTIONS (13)
  - BLEPHARITIS [None]
  - BRADYCARDIA [None]
  - CARDIAC FAILURE CONGESTIVE [None]
  - CATARACT [None]
  - DIZZINESS [None]
  - ECONOMIC PROBLEM [None]
  - HYPOTENSION [None]
  - ILL-DEFINED DISORDER [None]
  - INJURY [None]
  - MENTAL STATUS CHANGES [None]
  - PAIN [None]
  - PYREXIA [None]
  - VISION BLURRED [None]
